FAERS Safety Report 9514517 (Version 3)
Quarter: 2014Q1

REPORT INFORMATION
  Report Type: Report from Study
  Country: JP (occurrence: JP)
  Receive Date: 20130911
  Receipt Date: 20140228
  Transmission Date: 20141002
  Serious: Yes (Other)
  Sender: FDA-Public Use
  Company Number: JP-MERCK-1307JPN001337

PATIENT
  Age: 52 Year
  Sex: Male

DRUGS (15)
  1. GLACTIV [Suspect]
     Indication: DIABETES MELLITUS
     Dosage: 50 MG QD, AFTER BREAKFAST
     Route: 048
     Dates: start: 20120410
  2. RENIVEZE [Concomitant]
     Dosage: UNK
  3. CRESTOR [Concomitant]
     Dosage: UNK
  4. HUMALOG [Concomitant]
     Dosage: 60 UNITS (24-20-16), QD
     Dates: end: 20120514
  5. HUMALOG [Concomitant]
     Dosage: 60 UNITS (22-20-18), QD
     Dates: start: 20120515
  6. LANTUS [Concomitant]
     Dosage: 57 UNITS (57-0-0), QD
     Dates: end: 20120625
  7. LANTUS [Concomitant]
     Dosage: 58 UNITS (58-0-0) , QD
     Dates: start: 20120626
  8. SEIBULE [Concomitant]
     Dosage: UNK
  9. METGLUCO [Concomitant]
     Dosage: UNK
  10. TRICOR (FENOFIBRATE) [Concomitant]
     Dosage: UNK
  11. EPADEL [Concomitant]
     Dosage: UNK
  12. DIGOSIN [Concomitant]
     Dosage: UNK
     Dates: end: 20120918
  13. LASIX (FUROSEMIDE) [Concomitant]
     Dosage: UNK
  14. ZYLORIC [Concomitant]
     Dosage: UNK
  15. ARTIST [Concomitant]
     Dosage: UNK

REACTIONS (1)
  - Myocardial ischaemia [Recovered/Resolved]
